FAERS Safety Report 21246186 (Version 1)
Quarter: 2022Q3

REPORT INFORMATION
  Report Type: Spontaneous
  Country: DE (occurrence: DE)
  Receive Date: 20220824
  Receipt Date: 20220824
  Transmission Date: 20221027
  Serious: Yes (Other)
  Sender: FDA-Public Use
  Company Number: DE-DCGMA-21195514

PATIENT
  Age: 93 Year
  Sex: Female
  Weight: 50 kg

DRUGS (1)
  1. TORSEMIDE [Suspect]
     Active Substance: TORSEMIDE
     Indication: Renal failure
     Dosage: UNIT DOSE: 20 MG, FREQUENCY TIME : 2 DAY, DURATION : 5 DAYS
     Route: 065

REACTIONS (3)
  - Glossitis [Unknown]
  - Pruritus [Unknown]
  - Hypoaesthesia oral [Unknown]

NARRATIVE: CASE EVENT DATE: 20211214
